FAERS Safety Report 22101410 (Version 1)
Quarter: 2023Q1

REPORT INFORMATION
  Report Type: Report from Study
  Country: US (occurrence: US)
  Receive Date: 20230316
  Receipt Date: 20230316
  Transmission Date: 20230418
  Serious: Yes (Hospitalization)
  Sender: FDA-Public Use
  Company Number: US-ABBVIE-4340357

PATIENT
  Sex: Male

DRUGS (2)
  1. VENCLEXTA [Suspect]
     Active Substance: VENETOCLAX
     Indication: Acute monocytic leukaemia
     Dosage: ON DAY 1
     Route: 048
  2. VENCLEXTA [Suspect]
     Active Substance: VENETOCLAX
     Indication: Acute monocytic leukaemia
     Dosage: THEREAFTER WITH FOOD AND FULL GLASS OF WATER
     Route: 048

REACTIONS (1)
  - Blood pressure fluctuation [Unknown]
